FAERS Safety Report 6196800-0 (Version None)
Quarter: 2009Q2

REPORT INFORMATION
  Report Type: 
  Country: None (occurrence: None)
  Receive Date: 20090520
  Receipt Date: 20090513
  Transmission Date: 20091009
  Serious: Yes (Hospitalization)
  Sender: FDA-Public Use
  Company Number: PHHY2009ES18199

PATIENT
  Age: 25 Year
  Sex: Male

DRUGS (4)
  1. VOLTAREN [Suspect]
     Indication: TOOTHACHE
     Dosage: 50 MG PER DAY
     Route: 048
     Dates: start: 20090205, end: 20090208
  2. NOLOTIL [Suspect]
     Indication: TOOTHACHE
     Dosage: 4 G, BID
     Route: 065
     Dates: start: 20090202, end: 20090203
  3. IBUPROFEN [Suspect]
     Indication: TOOTHACHE
     Dosage: UNK
     Route: 065
     Dates: start: 20090203, end: 20090208
  4. EFELERGAN [Concomitant]

REACTIONS (1)
  - THROMBOCYTOPENIC PURPURA [None]
